FAERS Safety Report 20371342 (Version 12)
Quarter: 2022Q3

REPORT INFORMATION
  Report Type: Spontaneous
  Country: CA (occurrence: CA)
  Receive Date: 20220124
  Receipt Date: 20220721
  Transmission Date: 20221026
  Serious: Yes (Death, Hospitalization, Other)
  Sender: FDA-Public Use
  Company Number: CA-PFIZER INC-2021199021

PATIENT
  Age: 59 Year
  Sex: Male
  Weight: 71 kg

DRUGS (15)
  1. ZIRABEV [Suspect]
     Active Substance: BEVACIZUMAB-BVZR
     Dosage: 10 MG/KG (675MG) EVERY 2 WEEKS
     Route: 042
     Dates: start: 20210222
  2. ZIRABEV [Suspect]
     Active Substance: BEVACIZUMAB-BVZR
     Dosage: 10 MG/KG (675MG) EVERY 2 WEEKS
     Route: 042
     Dates: start: 20210407
  3. ZIRABEV [Suspect]
     Active Substance: BEVACIZUMAB-BVZR
     Dosage: 10 MG/KG (675MG) EVERY 2 WEEKS
     Route: 042
     Dates: start: 20210407
  4. ZIRABEV [Suspect]
     Active Substance: BEVACIZUMAB-BVZR
     Dosage: 10 MG/KG (675MG) EVERY 2 WEEKS
     Route: 042
     Dates: start: 20210422
  5. ZIRABEV [Suspect]
     Active Substance: BEVACIZUMAB-BVZR
     Dosage: 10 MG/KG (675MG) EVERY 2 WEEKS
     Route: 042
     Dates: start: 20210422
  6. ZIRABEV [Suspect]
     Active Substance: BEVACIZUMAB-BVZR
     Dosage: 10 MG/KG  (675MG) EVERY 2 WEEKS
     Route: 042
     Dates: start: 20210505
  7. ZIRABEV [Suspect]
     Active Substance: BEVACIZUMAB-BVZR
     Dosage: 10 MG/KG  (675MG) EVERY 2 WEEKS
     Route: 042
     Dates: start: 20210505
  8. ZIRABEV [Suspect]
     Active Substance: BEVACIZUMAB-BVZR
     Dosage: 10 MG/KG (675MG) EVERY 2 WEEKS
     Route: 042
     Dates: start: 20210628
  9. ZIRABEV [Suspect]
     Active Substance: BEVACIZUMAB-BVZR
     Dosage: 400 MG
     Route: 042
     Dates: start: 20220112
  10. ZIRABEV [Suspect]
     Active Substance: BEVACIZUMAB-BVZR
     Dosage: 400 MG
     Route: 042
     Dates: start: 20220112
  11. ZIRABEV [Suspect]
     Active Substance: BEVACIZUMAB-BVZR
     Dosage: UNK
     Dates: start: 20220126
  12. ZIRABEV [Suspect]
     Active Substance: BEVACIZUMAB-BVZR
     Dosage: 675MG (400 MG) EVERY 2 WEEKS
     Route: 042
     Dates: start: 20220504
  13. ZIRABEV [Suspect]
     Active Substance: BEVACIZUMAB-BVZR
     Dosage: 675MG (275 MG; 10 MG/KG) EVERY 2 WEEKS
     Route: 042
     Dates: start: 20220504, end: 20220601
  14. CLOBAZAM [Concomitant]
     Active Substance: CLOBAZAM
     Dosage: UNK
  15. SODIUM CHLORIDE [Concomitant]
     Active Substance: SODIUM CHLORIDE
     Dosage: 275 MG

REACTIONS (19)
  - Death [Fatal]
  - Seizure like phenomena [Unknown]
  - Asthenia [Unknown]
  - Dysstasia [Unknown]
  - Muscular weakness [Unknown]
  - COVID-19 [Unknown]
  - Pneumonia [Unknown]
  - Weight decreased [Unknown]
  - Off label use [Unknown]
  - Off label use [Unknown]
  - Inappropriate schedule of product administration [Unknown]
  - Intentional product use issue [Unknown]
  - Blood pressure diastolic increased [Unknown]
  - Heart rate decreased [Unknown]
  - Stress [Unknown]
  - Fall [Unknown]
  - Mobility decreased [Unknown]
  - Gait disturbance [Unknown]
  - Balance disorder [Unknown]

NARRATIVE: CASE EVENT DATE: 20210407
